FAERS Safety Report 8739218 (Version 2)
Quarter: 2012Q4

REPORT INFORMATION
  Report Type: Report from Study
  Country: GB (occurrence: GB)
  Receive Date: 20120823
  Receipt Date: 20120831
  Transmission Date: 20130627
  Serious: Yes (Other)
  Sender: FDA-Public Use
  Company Number: GB-INCYTE CORPORATION-2012IN001556

PATIENT
  Age: 73 Year
  Sex: Male
  Weight: 71 kg

DRUGS (7)
  1. INC424 [Suspect]
     Indication: MYELOFIBROSIS
     Dosage: 20 mg, bid
     Dates: start: 20120215
  2. PREDNISONE [Concomitant]
     Dosage: UNK
     Dates: start: 20110517
  3. THALIDOMIDE [Concomitant]
     Dosage: UNK
     Dates: start: 20110517, end: 20110802
  4. ALLOPURINOL [Concomitant]
     Dosage: UNK
     Dates: end: 20120627
  5. ALENDRONIC ACID [Concomitant]
     Dosage: UNK
     Dates: end: 20120627
  6. GLICLAZIDE [Concomitant]
     Dosage: UNK
     Dates: end: 20120627
  7. RAMIPRIL [Concomitant]
     Dosage: UNK
     Dates: end: 20120627

REACTIONS (1)
  - Diarrhoea [Unknown]
